FAERS Safety Report 12978601 (Version 7)
Quarter: 2020Q2

REPORT INFORMATION
  Report Type: Spontaneous
  Country: JP (occurrence: JP)
  Receive Date: 20161128
  Receipt Date: 20200526
  Transmission Date: 20200713
  Serious: Yes (Hospitalization)
  Sender: FDA-Public Use
  Company Number: JP-JNJFOC-20161120794

PATIENT
  Age: 87 Year
  Sex: Male

DRUGS (5)
  1. REMINYL [Suspect]
     Active Substance: GALANTAMINE
     Indication: DEMENTIA ALZHEIMER^S TYPE
     Route: 048
  2. PRAVASTATIN SODIUM. [Concomitant]
     Active Substance: PRAVASTATIN SODIUM
     Indication: HYPERLIPIDAEMIA
     Route: 065
  3. REMINYL [Suspect]
     Active Substance: GALANTAMINE
     Route: 048
  4. REMINYL [Suspect]
     Active Substance: GALANTAMINE
     Route: 048
  5. AMBROXOL HYDROCHLORIDE [Concomitant]
     Active Substance: AMBROXOL HYDROCHLORIDE
     Indication: BRONCHITIS CHRONIC
     Route: 065

REACTIONS (1)
  - Cholinergic syndrome [Recovered/Resolved]
